FAERS Safety Report 5306497-7 (Version None)
Quarter: 2007Q2

REPORT INFORMATION
  Report Type: 
  Country: None (occurrence: None)
  Receive Date: 20070417
  Receipt Date: 20070413
  Transmission Date: 20071010
  Serious: Yes (Death)
  Sender: FDA-Public Use
  Company Number: ADE07004-L

PATIENT

DRUGS (7)
  1. CYCLOSPORINE [Suspect]
     Indication: IMMUNOSUPPRESSION
     Dosage: 408 G/KG/DAY 12 HOURS, THEN ADJUSTED
  2. MYCOPHENOLATE MOFETIL [Concomitant]
  3. METHYLPREDNISOLONE 16MG TAB [Concomitant]
  4. THRIMETROPIM-SULFAMETOXAZOLE [Concomitant]
  5. ACYCLOVIR [Concomitant]
  6. GANCICLOVIR [Concomitant]
  7. NYSTATIN [Concomitant]

REACTIONS (1)
  - DEATH [None]
